FAERS Safety Report 9123206 (Version 1)
Quarter: 2013Q1

REPORT INFORMATION
  Report Type: Spontaneous
  Country: US (occurrence: None)
  Receive Date: 20130226
  Receipt Date: 20130226
  Transmission Date: 20140127
  Serious: No
  Sender: FDA-Public Use
  Company Number: None

PATIENT
  Age: 6 Year
  Sex: Female
  Weight: 21.77 kg

DRUGS (1)
  1. ADDERALL [Suspect]
     Indication: ATTENTION DEFICIT/HYPERACTIVITY DISORDER
     Dosage: 10 MG ONCE DAILY IN AM PO
     Route: 048
     Dates: start: 20130201, end: 20130218

REACTIONS (4)
  - Abnormal behaviour [None]
  - Disturbance in attention [None]
  - Educational problem [None]
  - Product quality issue [None]
